FAERS Safety Report 5679905-X (Version None)
Quarter: 2008Q1

REPORT INFORMATION
  Report Type: 
  Country: None (occurrence: None)
  Receive Date: 20080324
  Receipt Date: 20080312
  Transmission Date: 20080703
  Serious: Yes (Death)
  Sender: FDA-Public Use
  Company Number: 2008AL001578

PATIENT
  Age: 44 Year
  Sex: Male

DRUGS (1)
  1. PHENOBARBITAL TAB [Suspect]
     Indication: GRAND MAL CONVULSION

REACTIONS (12)
  - ARTERIOSCLEROSIS [None]
  - CARDIO-RESPIRATORY ARREST [None]
  - CHOLANGITIS [None]
  - FALL [None]
  - HEPATIC ENZYME INCREASED [None]
  - HEPATIC NECROSIS [None]
  - INTERSTITIAL LUNG DISEASE [None]
  - MYOCARDIAL FIBROSIS [None]
  - OVERWEIGHT [None]
  - PULMONARY CONGESTION [None]
  - PULMONARY OEDEMA [None]
  - SUDDEN DEATH [None]
